FAERS Safety Report 6162456-6 (Version None)
Quarter: 2009Q2

REPORT INFORMATION
  Report Type: 
  Country: None (occurrence: None)
  Receive Date: 20090421
  Receipt Date: 20090415
  Transmission Date: 20091009
  Serious: Yes (Other)
  Sender: FDA-Public Use
  Company Number: PHHY2009JP14470

PATIENT
  Age: 38 Year
  Sex: Female

DRUGS (3)
  1. METOPROLOL TARTRATE [Suspect]
  2. THIAMAZOLE [Concomitant]
  3. BETAMETHASONE [Concomitant]

REACTIONS (1)
  - PHAEOCHROMOCYTOMA MALIGNANT [None]
